FAERS Safety Report 8507810-X (Version None)
Quarter: 2012Q3

REPORT INFORMATION
  Report Type: 
  Country: None (occurrence: None)
  Receive Date: 20120713
  Receipt Date: 20120711
  Transmission Date: 20120928
  Serious: Yes (Death, Hospitalization, Other)
  Sender: FDA-Public Use
  Company Number: PHEH2006US03584

PATIENT
  Sex: Male
  Weight: 157.37 kg

DRUGS (11)
  1. ZOMETA [Suspect]
     Dosage: 4 MG, QMO
     Dates: start: 20040517, end: 20051201
  2. LOVENOX [Concomitant]
     Dosage: 160 MG, Q12H
  3. THALIDOMIDE [Concomitant]
     Dosage: 200 MG, QD
     Route: 048
  4. SOLU-MEDROL [Concomitant]
     Dosage: 80 MG, Q12H
     Route: 042
  5. LASIX [Concomitant]
     Dosage: 80 MG, UNK
     Route: 042
  6. ENOXAPARIN [Concomitant]
     Dosage: 150 MG, Q12H
  7. LORTAB [Concomitant]
     Dosage: UNK UKN, UNK
  8. TEQUIN [Concomitant]
     Dosage: 400 MG, QD
  9. PREDNISONE [Concomitant]
  10. DECADRON [Concomitant]
  11. PROTONIX [Concomitant]
     Dosage: 40 MG, QD
     Route: 048

REACTIONS (35)
  - SWELLING [None]
  - EXPOSED BONE IN JAW [None]
  - PNEUMONIA [None]
  - OEDEMA PERIPHERAL [None]
  - OSTEOMYELITIS [None]
  - LUNG NEOPLASM MALIGNANT [None]
  - BONE NEOPLASM MALIGNANT [None]
  - HYPERAESTHESIA [None]
  - HEMIPARESIS [None]
  - DEATH [None]
  - FISTULA DISCHARGE [None]
  - TOOTH ABSCESS [None]
  - BENIGN PROSTATIC HYPERPLASIA [None]
  - AGITATION [None]
  - RESPIRATORY DISTRESS [None]
  - NEUROPATHY PERIPHERAL [None]
  - HAEMOCHROMATOSIS [None]
  - TOOTH FRACTURE [None]
  - INJURY [None]
  - DEMENTIA [None]
  - MULTIPLE MYELOMA [None]
  - OSTEONECROSIS OF JAW [None]
  - FISTULA [None]
  - PAIN [None]
  - DEPRESSION [None]
  - PARAESTHESIA [None]
  - INSOMNIA [None]
  - FATIGUE [None]
  - ANXIETY [None]
  - ANAEMIA [None]
  - AGGRESSION [None]
  - RENAL FAILURE CHRONIC [None]
  - PULMONARY EMBOLISM [None]
  - URINARY TRACT INFECTION [None]
  - CONSTIPATION [None]
